FAERS Safety Report 6867548-1 (Version None)
Quarter: 2010Q3

REPORT INFORMATION
  Report Type: 
  Country: None (occurrence: None)
  Receive Date: 20100722
  Receipt Date: 20100715
  Transmission Date: 20110219
  Serious: Yes (Other)
  Sender: FDA-Public Use
  Company Number: US-BAXTER-2010BH019176

PATIENT
  Age: 50 Year
  Sex: Male

DRUGS (2)
  1. HEPARIN [Suspect]
     Indication: THROMBOSIS PROPHYLAXIS
     Route: 058
  2. HEPARIN [Suspect]
     Route: 058

REACTIONS (5)
  - CHEST PAIN [None]
  - DRUG PRESCRIBING ERROR [None]
  - FALL [None]
  - HEPARIN-INDUCED THROMBOCYTOPENIA [None]
  - OXYGEN SATURATION DECREASED [None]
